FAERS Safety Report 18943476 (Version 3)
Quarter: 2024Q4

REPORT INFORMATION
  Report Type: Report from Study
  Country: JP (occurrence: JP)
  Receive Date: 20210226
  Receipt Date: 20241213
  Transmission Date: 20250115
  Serious: Yes (Death, Other)
  Sender: ABBVIE
  Company Number: JP-TAKEDA-2021TJP005703

PATIENT
  Age: 80 Year
  Sex: Male
  Weight: 36.9 kg

DRUGS (1)
  1. LEUPROLIDE ACETATE [Suspect]
     Active Substance: LEUPROLIDE ACETATE
     Indication: Bulbospinal muscular atrophy congenital
     Dosage: 11.25 MILLIGRAM
     Route: 058
     Dates: start: 20191003, end: 20201126

REACTIONS (1)
  - Death [Fatal]

NARRATIVE: CASE EVENT DATE: 20210117
